FAERS Safety Report 5488319-7 (Version None)
Quarter: 2007Q4

REPORT INFORMATION
  Report Type: 
  Country: None (occurrence: None)
  Receive Date: 20071017
  Receipt Date: 20071011
  Transmission Date: 20080405
  Serious: Yes (Death, Hospitalization, Disabling)
  Sender: FDA-Public Use
  Company Number: A0619260A

PATIENT
  Age: 68 Year
  Sex: Male
  Weight: 109.1 kg

DRUGS (14)
  1. AVANDIA [Suspect]
     Route: 048
     Dates: start: 20010710, end: 20010907
  2. NPH ILETIN II [Concomitant]
     Dates: start: 19990601
  3. GLIPIZIDE [Concomitant]
     Dosage: 20MG TWICE PER DAY
     Route: 048
  4. METFORMIN [Concomitant]
     Dosage: 850MG THREE TIMES PER DAY
     Route: 048
  5. LOVASTATIN [Concomitant]
  6. LASIX [Concomitant]
  7. ACETAMINOPHEN [Concomitant]
     Dosage: 650MG AS REQUIRED
  8. ASPIRIN [Concomitant]
     Dosage: 325MG PER DAY
  9. FELODIPINE [Concomitant]
     Dosage: 5MG PER DAY
     Route: 048
  10. FOSINOPRIL SODIUM [Concomitant]
     Dosage: 20MG TWICE PER DAY
     Route: 048
  11. METOPROLOL TARTRATE [Concomitant]
     Dosage: 150MG TWICE PER DAY
     Route: 048
  12. NITROGLYCERIN [Concomitant]
     Dosage: .4MG AS REQUIRED
     Route: 060
  13. POTASSIUM CHLORIDE [Concomitant]
     Dosage: 16MEQ PER DAY
     Route: 048
  14. TERAZOSIN HCL [Concomitant]

REACTIONS (45)
  - ACUTE MYOCARDIAL INFARCTION [None]
  - ANAEMIA [None]
  - ANXIETY [None]
  - AORTIC VALVE DISEASE [None]
  - ATRIAL FIBRILLATION [None]
  - BRADYCARDIA [None]
  - CARDIAC ARREST [None]
  - CARDIAC ASTHMA [None]
  - CARDIAC FAILURE CONGESTIVE [None]
  - CARDIOMEGALY [None]
  - CAROTID ARTERY STENOSIS [None]
  - CHEST PAIN [None]
  - CHRONIC OBSTRUCTIVE PULMONARY DISEASE [None]
  - COLLAPSE OF LUNG [None]
  - COUGH [None]
  - DEPRESSION [None]
  - DIABETIC NEPHROPATHY [None]
  - DYSPNOEA [None]
  - EJECTION FRACTION DECREASED [None]
  - FATIGUE [None]
  - GENERAL PHYSICAL HEALTH DETERIORATION [None]
  - HAEMATOCHEZIA [None]
  - HYPERCAPNIA [None]
  - HYPERHIDROSIS [None]
  - HYPOXIA [None]
  - INFECTION [None]
  - ISCHAEMIC CARDIOMYOPATHY [None]
  - LUNG INFECTION PSEUDOMONAL [None]
  - LUNG INJURY [None]
  - MUSCULOSKELETAL DISORDER [None]
  - OEDEMA [None]
  - PALLOR [None]
  - PERICARDIAL EFFUSION [None]
  - PITTING OEDEMA [None]
  - PLEURAL EFFUSION [None]
  - PYREXIA [None]
  - RENAL FAILURE [None]
  - RENAL FAILURE ACUTE [None]
  - RESPIRATORY DISTRESS [None]
  - RESPIRATORY FAILURE [None]
  - SEPSIS [None]
  - SLEEP APNOEA SYNDROME [None]
  - VENOUS STASIS [None]
  - VENTRICULAR EXTRASYSTOLES [None]
  - WEIGHT INCREASED [None]
